FAERS Safety Report 10977645 (Version 1)
Quarter: 2015Q2

REPORT INFORMATION
  Report Type: Spontaneous
  Country: AR (occurrence: AR)
  Receive Date: 20150402
  Receipt Date: 20150402
  Transmission Date: 20150821
  Serious: Yes (Death)
  Sender: FDA-Public Use
  Company Number: AR-JNJFOC-20150400141

PATIENT
  Age: 74 Year

DRUGS (1)
  1. IBRUTINIB [Suspect]
     Active Substance: IBRUTINIB
     Indication: MANTLE CELL LYMPHOMA REFRACTORY
     Route: 048

REACTIONS (4)
  - Mucosal haemorrhage [Fatal]
  - Platelet count decreased [Fatal]
  - Respiratory arrest [Fatal]
  - Lung infiltration [Fatal]

NARRATIVE: CASE EVENT DATE: 20150326
